FAERS Safety Report 12356797 (Version 1)
Quarter: 2016Q2

REPORT INFORMATION
  Report Type: Spontaneous
  Country: US (occurrence: US)
  Receive Date: 20160511
  Receipt Date: 20160511
  Transmission Date: 20160815
  Serious: No
  Sender: FDA-Public Use
  Company Number: US-PFIZER INC-2016224784

PATIENT
  Age: 47 Year
  Sex: Female
  Weight: 94.79 kg

DRUGS (7)
  1. SEROQUEL [Concomitant]
     Active Substance: QUETIAPINE FUMARATE
     Dosage: 300 MG, UNK
     Route: 048
  2. CELEBREX [Concomitant]
     Active Substance: CELECOXIB
     Dosage: 100 MG, UNK
     Route: 048
  3. CYCLOBENZAPRINE [Concomitant]
     Active Substance: CYCLOBENZAPRINE
     Dosage: 10 MG, UNK
     Route: 048
  4. LYRICA [Suspect]
     Active Substance: PREGABALIN
     Dosage: 50 MG, 3X/DAY
     Route: 048
     Dates: start: 20151231, end: 20160228
  5. FLUOXETINE [Concomitant]
     Active Substance: FLUOXETINE HYDROCHLORIDE
     Dosage: 20 MG, UNK
     Route: 048
  6. LYRICA [Suspect]
     Active Substance: PREGABALIN
     Dosage: 100 MG, 2X/DAY ( IN THE MORNING AND IN THE EVENING)
     Route: 048
     Dates: start: 20151231, end: 20160228
  7. ESTRACE [Concomitant]
     Active Substance: ESTRADIOL
     Dosage: 1 MG, UNK
     Route: 048

REACTIONS (19)
  - Insomnia [Unknown]
  - Nausea [Unknown]
  - Fatigue [Unknown]
  - Night sweats [Unknown]
  - Stress [Unknown]
  - Depressed mood [Unknown]
  - Pain in extremity [Unknown]
  - Pain [Unknown]
  - Dry mouth [Unknown]
  - Musculoskeletal pain [Unknown]
  - Muscle spasms [Unknown]
  - Back pain [Unknown]
  - Chills [Unknown]
  - Anxiety [Unknown]
  - Condition aggravated [Unknown]
  - Heart rate irregular [Unknown]
  - Arthralgia [Unknown]
  - Neck pain [Unknown]
  - Hyperhidrosis [Unknown]
